FAERS Safety Report 9208313 (Version 1)
Quarter: 2013Q2

REPORT INFORMATION
  Report Type: Spontaneous
  Country: CA (occurrence: CA)
  Receive Date: 20130403
  Receipt Date: 20130403
  Transmission Date: 20140414
  Serious: Yes (Other)
  Sender: FDA-Public Use
  Company Number: CA-AMGEN-CANSP2013022490

PATIENT
  Age: 48 Year
  Sex: Male

DRUGS (1)
  1. ENBREL [Suspect]
     Indication: ANKYLOSING SPONDYLITIS
     Dosage: 50, UNK
     Route: 058
     Dates: start: 20100728

REACTIONS (3)
  - Depression [Not Recovered/Not Resolved]
  - Anxiety [Unknown]
  - Influenza [Recovered/Resolved]
